FAERS Safety Report 6616025-1 (Version None)
Quarter: 2010Q1

REPORT INFORMATION
  Report Type: 
  Country: None (occurrence: None)
  Receive Date: 20100305
  Receipt Date: 20100225
  Transmission Date: 20100710
  Serious: Yes (Other)
  Sender: FDA-Public Use
  Company Number: B0635672A

PATIENT
  Sex: Female

DRUGS (14)
  1. SEROXAT [Suspect]
     Indication: ANXIETY
     Route: 048
  2. TAMOXIFEN CITRATE [Suspect]
     Indication: DRUG USE FOR UNKNOWN INDICATION
     Dosage: 20MG PER DAY
     Route: 065
     Dates: start: 20091126
  3. LEVOTHYROXINE SODIUM [Concomitant]
     Dosage: 100MCG PER DAY
  4. BRINZOLAMIDE [Concomitant]
     Dosage: 1DROP THREE TIMES PER DAY
     Route: 047
  5. LATANOPROST [Concomitant]
     Dosage: 1DROP AT NIGHT
     Route: 047
  6. LANSOPRAZOLE [Concomitant]
  7. BUDESONIDE [Concomitant]
  8. SIMVASTATIN [Concomitant]
  9. DICLOFENAC [Concomitant]
  10. PLAQUENIL [Concomitant]
     Route: 065
  11. FORMOTEROL [Concomitant]
  12. FORMOTEROL [Concomitant]
  13. DICLOFENAC [Concomitant]
     Dosage: 75MG TWICE PER DAY
  14. PLAQUENIL [Concomitant]
     Indication: PAIN
     Dosage: 400MG AT NIGHT

REACTIONS (19)
  - ARTHRALGIA [None]
  - BLOOD CHOLESTEROL INCREASED [None]
  - BLOOD URINE PRESENT [None]
  - BREAST CANCER FEMALE [None]
  - CONTUSION [None]
  - DRUG INTERACTION [None]
  - DRUG WITHDRAWAL SYNDROME [None]
  - FEAR [None]
  - FLUID RETENTION [None]
  - GLAUCOMA [None]
  - HAEMATOCHEZIA [None]
  - HAEMATURIA [None]
  - HAEMOPTYSIS [None]
  - HOT FLUSH [None]
  - HYPERHIDROSIS [None]
  - JOINT SWELLING [None]
  - PAIN [None]
  - STRESS URINARY INCONTINENCE [None]
  - URINARY RETENTION [None]
